FAERS Safety Report 7250924-5 (Version None)
Quarter: 2011Q1

REPORT INFORMATION
  Report Type: 
  Country: None (occurrence: None)
  Receive Date: 20110128
  Receipt Date: 20110119
  Transmission Date: 20110831
  Serious: Yes (Hospitalization)
  Sender: FDA-Public Use
  Company Number: A0908758A

PATIENT
  Sex: Male

DRUGS (2)
  1. PAXIL [Suspect]
     Indication: DEPRESSION
     Dosage: 120MG SEE DOSAGE TEXT
     Route: 048
     Dates: start: 20000101, end: 20050501
  2. COCAINE [Suspect]

REACTIONS (7)
  - COMPULSIONS [None]
  - PARAESTHESIA [None]
  - SUICIDAL BEHAVIOUR [None]
  - MANIA [None]
  - OVERDOSE [None]
  - DEPENDENCE [None]
  - SENSORY DISTURBANCE [None]
